FAERS Safety Report 20015585 (Version 1)
Quarter: 2021Q4

REPORT INFORMATION
  Report Type: Spontaneous
  Country: US (occurrence: None)
  Receive Date: 20211029
  Receipt Date: 20211029
  Transmission Date: 20220303
  Serious: No
  Sender: FDA-Public Use
  Company Number: None

PATIENT
  Age: 48 Year
  Sex: Female

DRUGS (1)
  1. GLEOSTINE [Suspect]
     Active Substance: LOMUSTINE
     Dosage: OTHER FREQUENCY : OTHER;?
     Route: 048
     Dates: start: 202108

REACTIONS (1)
  - Neoplasm [None]

NARRATIVE: CASE EVENT DATE: 20211029
